FAERS Safety Report 9813685 (Version 1)
Quarter: 2014Q1

REPORT INFORMATION
  Report Type: Spontaneous
  Country: IT (occurrence: IT)
  Receive Date: 20140113
  Receipt Date: 20140113
  Transmission Date: 20141002
  Serious: Yes (Other)
  Sender: FDA-Public Use
  Company Number: IT-TEVA-454164ISR

PATIENT
  Age: 52 Year
  Sex: Female

DRUGS (1)
  1. RISPERIDONE [Suspect]
     Indication: SCHIZOPHRENIA
     Dosage: 6 MILLIGRAM DAILY;
     Route: 048
     Dates: start: 20070120, end: 20131027

REACTIONS (6)
  - Drug effect decreased [Recovering/Resolving]
  - Anxiety [Recovering/Resolving]
  - Schizophrenia [Recovering/Resolving]
  - Thinking abnormal [Recovering/Resolving]
  - Illusion [Recovering/Resolving]
  - Product substitution issue [Unknown]
